FAERS Safety Report 9726160 (Version 1)
Quarter: 2013Q4

REPORT INFORMATION
  Report Type: Spontaneous
  Country: IT (occurrence: IT)
  Receive Date: 20131203
  Receipt Date: 20131203
  Transmission Date: 20140711
  Serious: Yes (Other)
  Sender: FDA-Public Use
  Company Number: IT-ASTRAZENECA-2012SE87150

PATIENT
  Age: 22345 Day
  Sex: Female

DRUGS (2)
  1. ANTRA [Suspect]
     Route: 048
     Dates: start: 20121004, end: 20121004
  2. CARBOPLATIN [Concomitant]
     Indication: OVARIAN NEOPLASM
     Dosage: 600MG/60 ML SOLUTION FOR INJECTION FOR INTRAVENOUS USE
     Route: 042
     Dates: start: 20120801, end: 20120801

REACTIONS (4)
  - Laryngeal oedema [Unknown]
  - Laryngeal discomfort [Unknown]
  - Drug abuse [Unknown]
  - Swollen tongue [Unknown]
